FAERS Safety Report 12254348 (Version 1)
Quarter: 2016Q2

REPORT INFORMATION
  Report Type: Report from Study
  Country: US (occurrence: US)
  Receive Date: 20160411
  Receipt Date: 20160411
  Transmission Date: 20160815
  Serious: No
  Sender: FDA-Public Use
  Company Number: US-ABBVIE-16P-163-1536951-00

PATIENT
  Age: 37 Year
  Sex: Male

DRUGS (7)
  1. MIRTAZAPINE. [Concomitant]
     Active Substance: MIRTAZAPINE
     Indication: PRODUCT USED FOR UNKNOWN INDICATION
     Dosage: 1 TAB AT BEDTIME
     Route: 048
     Dates: start: 20150713
  2. MELATONIN [Concomitant]
     Active Substance: MELATONIN
     Indication: PRODUCT USED FOR UNKNOWN INDICATION
     Dosage: 1 TAB AT BEDTIME
     Route: 048
     Dates: start: 20150713
  3. DUOPA [Suspect]
     Active Substance: CARBIDOPA\LEVODOPA
     Indication: PARKINSON^S DISEASE
     Dosage: 4.3 ML/HR
     Route: 050
     Dates: start: 20150729
  4. SINEMET [Concomitant]
     Active Substance: CARBIDOPA\LEVODOPA
     Indication: PRODUCT USED FOR UNKNOWN INDICATION
     Route: 048
     Dates: start: 20150713
  5. CLONAZEPAM. [Concomitant]
     Active Substance: CLONAZEPAM
     Indication: PRODUCT USED FOR UNKNOWN INDICATION
     Dosage: 1 TABLET AT BEDTIME
     Route: 048
     Dates: start: 20150713
  6. LEXAPRO [Concomitant]
     Active Substance: ESCITALOPRAM OXALATE
     Indication: PRODUCT USED FOR UNKNOWN INDICATION
     Dosage: 1 TAB EVERY MORNING
     Route: 048
     Dates: start: 20150713
  7. TRAZODONE [Concomitant]
     Active Substance: TRAZODONE HYDROCHLORIDE
     Indication: PRODUCT USED FOR UNKNOWN INDICATION
     Dosage: 1 TAB AT BEDTIME
     Route: 048
     Dates: start: 20150713

REACTIONS (5)
  - Infection [Unknown]
  - Facial spasm [Unknown]
  - Upper respiratory tract infection [Unknown]
  - Cough [Unknown]
  - Productive cough [Unknown]

NARRATIVE: CASE EVENT DATE: 201507
